FAERS Safety Report 18497702 (Version 2)
Quarter: 2020Q4

REPORT INFORMATION
  Report Type: Report from Study
  Country: GR (occurrence: GR)
  Receive Date: 20201112
  Receipt Date: 20201126
  Transmission Date: 20210114
  Serious: Yes (Life-Threatening, Hospitalization, Other)
  Sender: FDA-Public Use
  Company Number: GR-BIOVITRUM-2020GR5836

PATIENT
  Age: 59 Year
  Sex: Male
  Weight: 90 kg

DRUGS (16)
  1. LINEZOLIDE [Concomitant]
     Active Substance: LINEZOLID
     Indication: COVID-19
     Dosage: 2 GRAM
     Route: 042
     Dates: start: 20200701
  2. LOPINAVIR [Concomitant]
     Active Substance: LOPINAVIR
     Indication: PNEUMONIA
  3. CEFTRIAXONE. [Concomitant]
     Active Substance: CEFTRIAXONE
     Indication: PNEUMONIA
  4. TINZAPARINE [Concomitant]
     Active Substance: TINZAPARIN
     Indication: THROMBOSIS
     Dosage: 0,45
     Route: 058
     Dates: start: 20200701
  5. LOPINAVIR [Concomitant]
     Active Substance: LOPINAVIR
     Indication: COVID-19
     Route: 048
     Dates: start: 20200701, end: 20200704
  6. LINEZOLIDE [Concomitant]
     Active Substance: LINEZOLID
     Indication: PNEUMONIA
  7. REMDESIVIR. [Concomitant]
     Active Substance: REMDESIVIR
     Indication: COVID-19
     Route: 048
     Dates: start: 20200701
  8. SULFAMETHOXAZOLE-TRIMETHOPRIM [Suspect]
     Active Substance: SULFAMETHOXAZOLE\TRIMETHOPRIM
     Indication: COVID-19
  9. DEXAMETHASONE. [Concomitant]
     Active Substance: DEXAMETHASONE
     Indication: COVID-19
     Route: 042
     Dates: start: 20200701
  10. ANAKINRA [Suspect]
     Active Substance: ANAKINRA
     Indication: COVID-19
     Route: 058
     Dates: start: 20200703, end: 20200712
  11. TINZAPARINE [Concomitant]
     Active Substance: TINZAPARIN
     Indication: PROPHYLAXIS
  12. ESOMEPRAZOLE. [Concomitant]
     Active Substance: ESOMEPRAZOLE MAGNESIUM
     Indication: PROPHYLAXIS
  13. REMDESIVIR. [Concomitant]
     Active Substance: REMDESIVIR
     Indication: PNEUMONIA
  14. DEXAMETHASONE. [Concomitant]
     Active Substance: DEXAMETHASONE
     Indication: PNEUMONIA
  15. CEFTRIAXONE. [Concomitant]
     Active Substance: CEFTRIAXONE
     Indication: COVID-19
     Route: 042
     Dates: start: 20200701
  16. ESOMEPRAZOLE. [Concomitant]
     Active Substance: ESOMEPRAZOLE MAGNESIUM
     Indication: GASTROINTESTINAL DISORDER
     Route: 042
     Dates: start: 20200701, end: 20200704

REACTIONS (6)
  - Liver function test increased [Unknown]
  - Lower respiratory tract infection bacterial [Unknown]
  - Haemodynamic instability [Recovered/Resolved]
  - Shock [Unknown]
  - Anaemia [Unknown]
  - Acute respiratory distress syndrome [Recovered/Resolved]

NARRATIVE: CASE EVENT DATE: 20200704
